FAERS Safety Report 8957189 (Version 2)
Quarter: 2013Q1

REPORT INFORMATION
  Report Type: Report from Study
  Country: DE (occurrence: DE)
  Receive Date: 20121210
  Receipt Date: 20130306
  Transmission Date: 20140127
  Serious: Yes (Hospitalization, Other)
  Sender: FDA-Public Use
  Company Number: DE-ROCHE-1165438

PATIENT
  Age: 65 Year
  Sex: Male
  Weight: 70 kg

DRUGS (11)
  1. BEVACIZUMAB [Suspect]
     Indication: COLON CANCER
     Route: 042
     Dates: start: 20120319
  2. LOPERAMIDE [Concomitant]
     Route: 048
     Dates: start: 20120319
  3. OMEP [Concomitant]
     Route: 065
     Dates: start: 20120319
  4. XELODA [Concomitant]
     Indication: COLON CANCER
     Route: 048
     Dates: start: 20120319
  5. METFORMIN [Concomitant]
  6. PLETAL [Concomitant]
  7. AMLODIPIN [Concomitant]
     Indication: HYPERTENSION
     Route: 065
  8. SIMVAHEXAL [Concomitant]
     Indication: DYSLIPIDAEMIA
     Route: 065
  9. ALLOPURINOL [Concomitant]
     Indication: DYSLIPIDAEMIA
     Route: 065
  10. METFORMIN HCL [Concomitant]
     Indication: DIABETES MELLITUS
     Route: 065
  11. CLEXANE [Concomitant]
     Route: 058

REACTIONS (9)
  - Coronary artery disease [Recovered/Resolved]
  - Coronary artery stenosis [Recovered/Resolved]
  - Coronary artery stenosis [Recovered/Resolved]
  - Acute myocardial infarction [Recovered/Resolved]
  - Anaemia [Unknown]
  - Pneumonia [Recovered/Resolved]
  - Large intestine polyp [Recovered/Resolved]
  - Metastases to liver [Unknown]
  - Drug resistance [Unknown]
